FAERS Safety Report 6965231-5 (Version None)
Quarter: 2010Q3

REPORT INFORMATION
  Report Type: 
  Country: None (occurrence: None)
  Receive Date: 20100903
  Receipt Date: 20100820
  Transmission Date: 20110219
  Serious: Yes (Hospitalization, Other)
  Sender: FDA-Public Use
  Company Number: PHHY2010JP56261

PATIENT
  Sex: Male
  Weight: 55 kg

DRUGS (1)
  1. CO-DIOVAN T32564+FCTAB [Suspect]
     Indication: HYPERTENSION
     Dosage: 1 DF, QD
     Route: 048
     Dates: start: 20090620, end: 20090717

REACTIONS (2)
  - CONDITION AGGRAVATED [None]
  - PHARYNGEAL CANCER STAGE UNSPECIFIED [None]
